FAERS Safety Report 9171207 (Version 1)
Quarter: 2013Q1

REPORT INFORMATION
  Report Type: Spontaneous
  Country: CN (occurrence: None)
  Receive Date: 20130312
  Receipt Date: 20130312
  Transmission Date: 20140127
  Serious: Yes (Other)
  Sender: FDA-Public Use
  Company Number: FK201300679

PATIENT
  Age: 77 Year
  Sex: Male

DRUGS (9)
  1. MANNITOL [Suspect]
     Indication: INTRACRANIAL PRESSURE INCREASED
     Dosage: UNKNOWN, 975 ML (TOTAL DOSE), INTRAVENOUS (NOT OTHERWISE SPECIFIED?
  2. FUROSEMIDE (MANUFACTURER UNKNOWN) (FUROSEMIDE) (FUROSEMIDE) [Suspect]
     Indication: INTRACRANIAL PRESSURE INCREASED
     Dosage: UNKNOWN, INTRAVENOUS (NOT OTHERWISE SPECIFIED(?
  3. GLYCERIN [Suspect]
     Indication: INTRACRANIAL PRESSURE INCREASED
     Dosage: UNKNOWN, INTRAVENOUS (NOT OTHERWISE SPECIFIED)
  4. DICLOFENAC (DICLOFENAC) [Suspect]
     Indication: INFECTION
     Route: 054
  5. EDARAVONE [Suspect]
  6. AMINOPYRINE [Suspect]
     Route: 030
  7. XUESAITONG [Concomitant]
  8. HUMILIN 70/30 (HUMAN MIXTARD/00806401/) [Concomitant]
  9. SHUXUENING [Concomitant]

REACTIONS (3)
  - Drug interaction [None]
  - Renal failure acute [None]
  - Lung infection [None]
